FAERS Safety Report 9648017 (Version 3)
Quarter: 2014Q1

REPORT INFORMATION
  Report Type: Spontaneous
  Country: US (occurrence: US)
  Receive Date: 20131028
  Receipt Date: 20140121
  Transmission Date: 20141002
  Serious: No
  Sender: FDA-Public Use
  Company Number: US-PFIZER INC-2013304363

PATIENT
  Age: 63 Year
  Sex: Male

DRUGS (2)
  1. SUTENT [Suspect]
     Indication: RENAL CANCER
     Dosage: 37.5 MG, CYCLIC (DAILY, FOUR WEEKS ON, TWO WEEKS OFF)
     Route: 048
     Dates: start: 20121116
  2. SUTENT [Suspect]
     Dosage: 37.5 MG, DAILY
     Route: 048
     Dates: start: 20130127

REACTIONS (2)
  - Dry mouth [Unknown]
  - Diarrhoea [Unknown]
